FAERS Safety Report 25706237 (Version 1)
Quarter: 2025Q3

REPORT INFORMATION
  Report Type: Report from Study
  Country: US (occurrence: US)
  Receive Date: 20250820
  Receipt Date: 20250820
  Transmission Date: 20251020
  Serious: Yes (Hospitalization)
  Sender: IPSEN BIOPHARMACEUTICALS, INC.
  Company Number: US-IPSEN Group, Research and Development-2025-20271

PATIENT
  Age: 61 Year
  Sex: Male

DRUGS (2)
  1. TAZVERIK [Suspect]
     Active Substance: TAZEMETOSTAT HYDROBROMIDE
     Indication: Malignant connective tissue neoplasm
  2. TAZVERIK [Suspect]
     Active Substance: TAZEMETOSTAT HYDROBROMIDE
     Indication: Soft tissue sarcoma

REACTIONS (3)
  - Urinary tract infection [Unknown]
  - Vomiting [Unknown]
  - Heat stroke [Unknown]

NARRATIVE: CASE EVENT DATE: 20250814
